FAERS Safety Report 9842018 (Version 2)
Quarter: 2014Q1

REPORT INFORMATION
  Report Type: Spontaneous
  Country: US (occurrence: US)
  Receive Date: 20140124
  Receipt Date: 20140124
  Transmission Date: 20141002
  Serious: Yes (Hospitalization)
  Sender: FDA-Public Use
  Company Number: US-BAXTER-2013BAX031416

PATIENT
  Age: 57 Year
  Sex: Female

DRUGS (2)
  1. DIANEAL LOW CALCIUM [Suspect]
     Indication: PERITONEAL DIALYSIS
     Route: 033
     Dates: start: 201111
  2. DIANEAL LOW CALCIUM [Suspect]
     Indication: PERITONEAL DIALYSIS
     Route: 033
     Dates: start: 201111

REACTIONS (3)
  - Urinary tract infection enterococcal [Recovered/Resolved]
  - Urinary tract infection fungal [Recovered/Resolved]
  - Peritonitis [Recovered/Resolved]
